FAERS Safety Report 19055517 (Version 1)
Quarter: 2021Q1

REPORT INFORMATION
  Report Type: Spontaneous
  Country: US (occurrence: US)
  Receive Date: 20210324
  Receipt Date: 20210324
  Transmission Date: 20210420
  Serious: Yes (Other)
  Sender: FDA-Public Use
  Company Number: US-FRESENIUS KABI-FK202102913

PATIENT
  Age: 52 Year
  Sex: Male
  Weight: 73.9 kg

DRUGS (1)
  1. FLUOROURACIL INJECTION, USP [Suspect]
     Active Substance: FLUOROURACIL
     Indication: COLON CANCER METASTATIC
     Dosage: 4465 MG OVER 48 HOURS
     Dates: start: 20210310, end: 20210312

REACTIONS (1)
  - Diarrhoea [Not Recovered/Not Resolved]
